FAERS Safety Report 11889313 (Version 2)
Quarter: 2016Q1

REPORT INFORMATION
  Report Type: Report from Study
  Country: US (occurrence: US)
  Receive Date: 20160105
  Receipt Date: 20160120
  Transmission Date: 20160526
  Serious: Yes (Hospitalization, Other)
  Sender: FDA-Public Use
  Company Number: US-AMAG PHARMACEUTICALS, INC.-AMAG201501257

PATIENT

DRUGS (2)
  1. IRON [Concomitant]
     Active Substance: IRON
     Dosage: UNK
  2. MAKENA [Suspect]
     Active Substance: HYDROXYPROGESTERONE CAPROATE
     Indication: PREMATURE DELIVERY
     Dosage: 250 MG, WEEKLY
     Route: 030
     Dates: start: 20150824

REACTIONS (8)
  - Haemorrhage [Unknown]
  - Premature labour [Recovered/Resolved]
  - Vulvovaginal discomfort [Unknown]
  - Foetal malposition [Unknown]
  - High risk pregnancy [Unknown]
  - Pain [Unknown]
  - Movement disorder [Unknown]
  - Premature delivery [Recovered/Resolved]

NARRATIVE: CASE EVENT DATE: 201511
